FAERS Safety Report 9150526 (Version 1)
Quarter: 2013Q1

REPORT INFORMATION
  Report Type: Spontaneous
  Country: US (occurrence: None)
  Receive Date: 20130131
  Receipt Date: 20130131
  Transmission Date: 20140127
  Serious: Yes (Hospitalization)
  Sender: FDA-Public Use
  Company Number: FK201300162

PATIENT
  Age: 92 Year
  Sex: Female

DRUGS (4)
  1. AMIODARONE HCL [Suspect]
     Dosage: 200 MG, 1 IN 1 D
  2. VERAPAMIL (VERAPAMIL) [Concomitant]
  3. LISINOPRIL (LISINOPRIL) [Concomitant]
  4. WARFARIN (WARFARIN) [Concomitant]

REACTIONS (2)
  - Acute interstitial pneumonitis [None]
  - Acute respiratory distress syndrome [None]
